FAERS Safety Report 8521518-6 (Version None)
Quarter: 2012Q3

REPORT INFORMATION
  Report Type: 
  Country: None (occurrence: None)
  Receive Date: 20120719
  Receipt Date: 20120713
  Transmission Date: 20120928
  Serious: Yes (Hospitalization)
  Sender: FDA-Public Use
  Company Number: PHHY2012CA061072

PATIENT
  Sex: Female

DRUGS (4)
  1. SANDOSTATIN [Suspect]
     Indication: CROHN'S DISEASE
  2. SANDOSTATIN [Suspect]
     Indication: NEOPLASM MALIGNANT
     Dosage: 500 UG, BID
     Route: 058
     Dates: start: 20120628
  3. SANDOSTATIN LAR [Suspect]
     Indication: CROHN'S DISEASE
  4. SANDOSTATIN LAR [Suspect]
     Indication: NEOPLASM MALIGNANT
     Dosage: 20 MG, QMO
     Route: 030
     Dates: start: 20120628

REACTIONS (2)
  - FATIGUE [None]
  - DECREASED APPETITE [None]
